FAERS Safety Report 7405408-8 (Version None)
Quarter: 2011Q2

REPORT INFORMATION
  Report Type: 
  Country: None (occurrence: None)
  Receive Date: 20110408
  Receipt Date: 20110325
  Transmission Date: 20111010
  Serious: Yes (Hospitalization)
  Sender: FDA-Public Use
  Company Number: DL2011-0230

PATIENT
  Age: 23 Year
  Sex: Female

DRUGS (5)
  1. MISOPROSTOL [Suspect]
     Dosage: 800 MCG, BUCCAL, BUCCAL AND VAGINAL
     Route: 002
     Dates: start: 20110126
  2. MISOPROSTOL [Suspect]
     Dosage: 800 MCG, BUCCAL, BUCCAL AND VAGINAL
     Route: 002
     Dates: start: 20110227
  3. MISOPROSTOL [Suspect]
     Dosage: 800 MCG, BUCCAL, BUCCAL AND VAGINAL
     Route: 002
     Dates: start: 20110226
  4. MIFEPREX [Suspect]
     Indication: ABORTION INDUCED
     Dosage: 200 MG, ORAL
     Route: 048
     Dates: start: 20110125
  5. AZITHROMYCIN [Concomitant]

REACTIONS (3)
  - HAEMORRHAGE [None]
  - ABDOMINAL PAIN [None]
  - ABORTION INCOMPLETE [None]
